FAERS Safety Report 12167784 (Version 2)
Quarter: 2016Q1

REPORT INFORMATION
  Report Type: Spontaneous
  Country: DE (occurrence: DE)
  Receive Date: 20160310
  Receipt Date: 20160318
  Transmission Date: 20160526
  Serious: Yes (Hospitalization, Other)
  Sender: FDA-Public Use
  Company Number: DE-009507513-1603DEU003738

PATIENT
  Sex: Female
  Weight: 60 kg

DRUGS (1)
  1. KEYTRUDA [Suspect]
     Active Substance: PEMBROLIZUMAB
     Indication: MALIGNANT MELANOMA STAGE IV
     Dosage: STRENGTH: 2 MG/KG BODY WEIGHT; Q3W
     Route: 042
     Dates: start: 20151015

REACTIONS (1)
  - Metastases to spleen [Recovered/Resolved]

NARRATIVE: CASE EVENT DATE: 20160219
